FAERS Safety Report 5615927-2 (Version None)
Quarter: 2008Q1

REPORT INFORMATION
  Report Type: 
  Country: None (occurrence: None)
  Receive Date: 20080206
  Receipt Date: 20080123
  Transmission Date: 20080703
  Serious: Yes (Death)
  Sender: FDA-Public Use
  Company Number: KR-PFIZER INC-2008010746

PATIENT
  Age: 44 Year
  Sex: Female

DRUGS (4)
  1. METHYLPREDNISOLONE SODIUM SUCCINATE [Suspect]
     Indication: INTERSTITIAL LUNG DISEASE
     Route: 042
  2. CYCLOPHOSPHAMIDE [Suspect]
     Indication: INTERSTITIAL LUNG DISEASE
     Route: 042
  3. CYCLOSPORINE [Suspect]
     Indication: INTERSTITIAL LUNG DISEASE
     Route: 048
  4. IMMUNOGLOBULINS [Suspect]
     Indication: INTERSTITIAL LUNG DISEASE

REACTIONS (1)
  - INTERSTITIAL LUNG DISEASE [None]
